FAERS Safety Report 9882231 (Version 2)
Quarter: 2014Q1

REPORT INFORMATION
  Report Type: Spontaneous
  Country: US (occurrence: US)
  Receive Date: 20140207
  Receipt Date: 20140217
  Transmission Date: 20141002
  Serious: Yes (Hospitalization)
  Sender: FDA-Public Use
  Company Number: US-BAYER-2014-017669

PATIENT
  Age: 29 Year
  Sex: Female
  Weight: 109.75 kg

DRUGS (7)
  1. MIRENA [Suspect]
     Dosage: 20 MCG/24HR, CONT
     Route: 015
     Dates: start: 20080123, end: 20110315
  2. FLAGYL [Concomitant]
     Indication: BACTERIAL VAGINOSIS
     Dosage: 2 G, UNK
  3. FLAGYL [Concomitant]
     Indication: BACTERIAL VAGINOSIS
     Dosage: 500 MG, BID
     Route: 048
  4. DIFLUCAN [Concomitant]
     Dosage: 150 MG, UNK
     Route: 048
  5. BACTRIM [Concomitant]
  6. VESICARE [Concomitant]
     Dosage: 5 MG, ONCE
  7. MACRODANTIN [Concomitant]

REACTIONS (6)
  - Uterine perforation [None]
  - Pelvic pain [None]
  - Abdominal pain lower [None]
  - Device dislocation [None]
  - Injury [None]
  - Emotional distress [None]
